FAERS Safety Report 10779469 (Version 1)
Quarter: 2015Q1

REPORT INFORMATION
  Report Type: Spontaneous
  Country: US (occurrence: US)
  Receive Date: 20150210
  Receipt Date: 20150210
  Transmission Date: 20150721
  Serious: Yes (Other)
  Sender: FDA-Public Use
  Company Number: US-AUROBINDO-AUR-APU-2015-00918

PATIENT
  Age: 70 Year
  Sex: Female
  Weight: 86.17 kg

DRUGS (3)
  1. CAPSAICIN. [Concomitant]
     Active Substance: CAPSAICIN
     Indication: ARTHRALGIA
     Dosage: UNK
     Route: 065
  2. AMOXICILLIN CAPSULES USP 500 MG [Suspect]
     Active Substance: AMOXICILLIN
     Indication: BACTERIAL INFECTION
  3. AMOXICILLIN CAPSULES USP 500 MG [Suspect]
     Active Substance: AMOXICILLIN
     Indication: MITRAL VALVE PROLAPSE
     Dosage: 500 MG, UNK
     Route: 048
     Dates: start: 201501, end: 201501

REACTIONS (7)
  - Peripheral venous disease [Not Recovered/Not Resolved]
  - Rash generalised [Not Recovered/Not Resolved]
  - Papule [Not Recovered/Not Resolved]
  - Pruritus [Not Recovered/Not Resolved]
  - Insomnia [Not Recovered/Not Resolved]
  - Neck pain [Not Recovered/Not Resolved]
  - Erythema [Not Recovered/Not Resolved]
